FAERS Safety Report 5072397-3 (Version None)
Quarter: 2006Q3

REPORT INFORMATION
  Report Type: 
  Country: None (occurrence: None)
  Receive Date: 20060710
  Receipt Date: 20050923
  Transmission Date: 20061208
  Serious: Yes (Other)
  Sender: FDA-Public Use
  Company Number: 2005US001106

PATIENT
  Age: 79 Year
  Sex: Male
  Weight: 85.7 kg

DRUGS (12)
  1. ADENOSCAN [Suspect]
     Indication: SCAN MYOCARDIAL PERFUSION
     Dates: start: 20050727, end: 20050727
  2. CARDIOLITE [Concomitant]
  3. METFORMIN (METFORMIN) [Concomitant]
  4. GLUCOTROL XL [Concomitant]
  5. SKELAXON (METAXALONE) [Concomitant]
  6. FLOMAX [Concomitant]
  7. ZOLOFT [Concomitant]
  8. PREVACID [Concomitant]
  9. XANAX [Concomitant]
  10. AMBIEN [Concomitant]
  11. SIMVASTATIN [Concomitant]
  12. ADVIL [Concomitant]

REACTIONS (2)
  - CHEST PAIN [None]
  - SYNCOPE [None]
